FAERS Safety Report 18052384 (Version 2)
Quarter: 2025Q3

REPORT INFORMATION
  Report Type: Spontaneous
  Country: EU (occurrence: EU)
  Receive Date: 20200722
  Receipt Date: 20250721
  Transmission Date: 20251020
  Serious: Yes (Other)
  Sender: AUROBINDO
  Company Number: EU-VIIV HEALTHCARE LIMITED-DE2020GSK120069

PATIENT
  Sex: Male

DRUGS (5)
  1. LAMIVUDINE [Suspect]
     Active Substance: LAMIVUDINE
     Indication: HIV infection
     Route: 065
  2. TENOFOVIR DISOPROXIL [Suspect]
     Active Substance: TENOFOVIR DISOPROXIL
     Indication: HIV infection
     Route: 065
     Dates: start: 2002, end: 2015
  3. ZIDOVUDINE [Suspect]
     Active Substance: ZIDOVUDINE
     Indication: HIV infection
     Dosage: 500 MILLIGRAM, ONCE A DAY
     Route: 065
     Dates: start: 198909
  4. SAQUINAVIR [Suspect]
     Active Substance: SAQUINAVIR
     Indication: HIV infection
     Route: 065
  5. EFAVIRENZ [Concomitant]
     Active Substance: EFAVIRENZ
     Indication: HIV infection
     Route: 065

REACTIONS (9)
  - Lipodystrophy acquired [Unknown]
  - Pathogen resistance [Unknown]
  - Renal impairment [Unknown]
  - Disease progression [Unknown]
  - Neck deformity [Unknown]
  - General physical health deterioration [Unknown]
  - Polyneuropathy chronic [Unknown]
  - Limb deformity [Unknown]
  - Impaired work ability [Unknown]

NARRATIVE: CASE EVENT DATE: 20010101
